FAERS Safety Report 11102943 (Version 1)
Quarter: 2015Q2

REPORT INFORMATION
  Report Type: Spontaneous
  Country: JP (occurrence: JP)
  Receive Date: 20150511
  Receipt Date: 20150511
  Transmission Date: 20150821
  Serious: Yes (Other)
  Sender: FDA-Public Use
  Company Number: JP-BEH-2013037744

PATIENT
  Age: 37 Year
  Sex: Female

DRUGS (10)
  1. METHYLPREDNISOLONE. [Concomitant]
     Active Substance: METHYLPREDNISOLONE
     Indication: INTERSTITIAL LUNG DISEASE
     Dosage: DAYS: 0 - 3, 16-18
  2. CYCLOSPORINE-A [Concomitant]
     Indication: INTERSTITIAL LUNG DISEASE
     Dosage: DAYS: 0-5
  3. CYCLOSPORINE-A [Concomitant]
     Indication: DERMATOMYOSITIS
     Dosage: DAYS: 6; DOSE: 250 - 300 MG/DAY
  4. CORTICOSTEROIDS [Concomitant]
     Active Substance: CORTICOSTEROID NOS
     Indication: INTERSTITIAL LUNG DISEASE
  5. CYCLOPHOSPHAMIDE. [Concomitant]
     Active Substance: CYCLOPHOSPHAMIDE
     Indication: INTERSTITIAL LUNG DISEASE
     Dosage: DAYS: 41
     Route: 042
  6. CORTICOSTEROIDS [Concomitant]
     Active Substance: CORTICOSTEROID NOS
     Indication: DERMATOMYOSITIS
  7. INTRAVENOUS IMMUNOGLOBULIN [Suspect]
     Active Substance: HUMAN IMMUNOGLOBULIN G
     Indication: DERMATOMYOSITIS
     Dosage: DAYS 6-10, 48-52
  8. INTRAVENOUS IMMUNOGLOBULIN [Suspect]
     Active Substance: HUMAN IMMUNOGLOBULIN G
     Indication: INTERSTITIAL LUNG DISEASE
     Dosage: DAYS 6-10, 48-52
  9. METHYLPREDNISOLONE. [Concomitant]
     Active Substance: METHYLPREDNISOLONE
     Indication: INTERSTITIAL LUNG DISEASE
     Dosage: DAYS: 0 - 3, 16-18
  10. CYCLOPHOSPHAMIDE. [Concomitant]
     Active Substance: CYCLOPHOSPHAMIDE
     Indication: DERMATOMYOSITIS
     Dosage: DAYS: 3, 22
     Route: 042

REACTIONS (2)
  - Interstitial lung disease [Recovered/Resolved]
  - Drug ineffective for unapproved indication [Recovered/Resolved]
